FAERS Safety Report 10373712 (Version 1)
Quarter: 2014Q1

REPORT INFORMATION
  Report Type: Spontaneous
  Country: US (occurrence: None)
  Receive Date: 20140306
  Receipt Date: 20140306
  Transmission Date: 20141002
  Serious: Yes (Hospitalization)
  Sender: FDA-Public Use
  Company Number: 163-21880-13030357

PATIENT
  Age: 74 Year
  Sex: Female

DRUGS (2)
  1. REVLIMID (LENALIDOMIDE) (25 MILLIGRAM, CAPSULES) [Suspect]
     Indication: PLASMA CELL MYELOMA
     Dosage: 21 IN 28 D
     Route: 048
     Dates: start: 20120831, end: 2013
  2. DEXAMETHASONE [Concomitant]

REACTIONS (7)
  - Pulmonary embolism [None]
  - Skin discolouration [None]
  - Skin exfoliation [None]
  - Oedema peripheral [None]
  - Blister [None]
  - Fatigue [None]
  - Insomnia [None]
